FAERS Safety Report 11866298 (Version 2)
Quarter: 2016Q1

REPORT INFORMATION
  Report Type: Spontaneous
  Country: US (occurrence: US)
  Receive Date: 20151223
  Receipt Date: 20160115
  Transmission Date: 20160526
  Serious: Yes (Hospitalization)
  Sender: FDA-Public Use
  Company Number: US-FRI-1000081831

PATIENT
  Age: 39 Year
  Sex: Female

DRUGS (4)
  1. SAVELLA [Suspect]
     Active Substance: MILNACIPRAN HYDROCHLORIDE
     Dosage: 75 MG
     Route: 048
     Dates: start: 2012, end: 2012
  2. SAVELLA [Suspect]
     Active Substance: MILNACIPRAN HYDROCHLORIDE
     Indication: FIBROMYALGIA
     Dosage: 100 MG
     Route: 048
     Dates: start: 2012, end: 2012
  3. SAVELLA [Suspect]
     Active Substance: MILNACIPRAN HYDROCHLORIDE
     Dosage: 75 MG
     Route: 048
     Dates: start: 20151230
  4. SAVELLA [Suspect]
     Active Substance: MILNACIPRAN HYDROCHLORIDE
     Dosage: 100 MG
     Route: 048
     Dates: start: 2012, end: 20151229

REACTIONS (6)
  - Drug ineffective [Not Recovered/Not Resolved]
  - Ischaemic stroke [Unknown]
  - Heart rate increased [Unknown]
  - Blood pressure increased [Unknown]
  - Nausea [Unknown]
  - Constipation [Unknown]

NARRATIVE: CASE EVENT DATE: 2012
